FAERS Safety Report 7630795 (Version 3)
Quarter: 2013Q2

REPORT INFORMATION
  Report Type: Report from Study
  Country: JP (occurrence: JP)
  Receive Date: 20101015
  Receipt Date: 20130524
  Transmission Date: 20140414
  Serious: Yes (Death, Hospitalization, Other)
  Sender: FDA-Public Use
  Company Number: JP-GENZYME-THYM-1001894

PATIENT
  Age: 58 Year
  Sex: Male
  Weight: 80 kg

DRUGS (14)
  1. THYMOGLOBULINE [Suspect]
     Indication: APLASTIC ANAEMIA
     Dosage: 200 MG, QD
     Route: 042
     Dates: start: 20100105, end: 20100105
  2. THYMOGLOBULINE [Suspect]
     Dosage: 200 MG, QD
     Route: 042
     Dates: start: 20100106, end: 20100109
  3. LENOGRASTIM [Concomitant]
     Indication: APLASTIC ANAEMIA
     Dosage: UNK
     Route: 065
     Dates: start: 20100105
  4. LENOGRASTIM [Concomitant]
     Indication: NEUTROPHIL COUNT DECREASED
  5. CICLOSPORIN [Concomitant]
     Indication: APLASTIC ANAEMIA
     Dosage: UNK
     Route: 065
     Dates: start: 20091110, end: 20100401
  6. RED BLOOD CELLS, CONCENTRATED [Concomitant]
     Indication: APLASTIC ANAEMIA
     Dosage: UNK
     Route: 065
     Dates: start: 20091026
  7. PLATELETS, HUMAN BLOOD [Concomitant]
     Indication: APLASTIC ANAEMIA
     Dosage: UNK
     Route: 065
     Dates: start: 20091026
  8. METHYLPREDNISOLONE SODIUM SUCCINATE [Concomitant]
     Indication: PREMEDICATION
     Dosage: UNK
     Route: 065
     Dates: start: 20100105, end: 20100115
  9. HYDROCORTISONE SODIUM PHOSPHATE [Concomitant]
     Indication: PREMEDICATION
     Dosage: UNK
     Route: 065
     Dates: start: 20100105
  10. HYDROCORTISONE SODIUM PHOSPHATE [Concomitant]
     Indication: APLASTIC ANAEMIA
  11. DEXCHLORPHENIRAMINE MALEATE [Concomitant]
     Indication: APLASTIC ANAEMIA
     Dosage: UNK
     Route: 065
     Dates: start: 20100105
  12. FLUCONAZOLE [Concomitant]
     Indication: INFECTION PROPHYLAXIS
     Dosage: UNK
     Route: 065
     Dates: start: 20091225, end: 20100116
  13. LEVOFLOXACIN [Concomitant]
     Indication: INFECTION PROPHYLAXIS
     Dosage: UNK
     Route: 065
     Dates: start: 20091216, end: 20100112
  14. G-CSF [Concomitant]
     Indication: APLASTIC ANAEMIA
     Dosage: UNK
     Route: 065
     Dates: start: 20091218

REACTIONS (7)
  - Renal impairment [Fatal]
  - Febrile neutropenia [Recovered/Resolved]
  - Staphylococcal infection [Recovered/Resolved]
  - Neutrophil count decreased [Unknown]
  - Hyperglycaemia [Unknown]
  - Pyrexia [Recovered/Resolved]
  - Cerebral haemorrhage [Fatal]
